FAERS Safety Report 15709237 (Version 1)
Quarter: 2018Q4

REPORT INFORMATION
  Report Type: Spontaneous
  Country: IN (occurrence: IN)
  Receive Date: 20181211
  Receipt Date: 20181211
  Transmission Date: 20190205
  Serious: Yes (Hospitalization)
  Sender: FDA-Public Use
  Company Number: IN-AKORN PHARMACEUTICALS-2018AKN01930

PATIENT
  Age: 50 Year
  Sex: Male

DRUGS (2)
  1. METHOTREXATE. [Concomitant]
     Active Substance: METHOTREXATE
     Indication: PSORIASIS
     Route: 048
  2. RIFAMPIN, ISONIAZID, PYRAZINAMIDE, AND ETHAMBUTOL [Suspect]
     Active Substance: ETHAMBUTOL\ISONIAZID\PYRAZINAMIDE\RIFAMPIN
     Indication: PULMONARY TUBERCULOSIS
     Dosage: THREE TABLETS COMBINATION 75 MG ISONIAZID, 150 MG RIFAMPICIN, 400 MG PYRAZINAMIDE, AND 275 MG ETHAMB
     Route: 065

REACTIONS (1)
  - Dermatitis exfoliative [Recovering/Resolving]
